FAERS Safety Report 7330217-8 (Version None)
Quarter: 2011Q1

REPORT INFORMATION
  Report Type: 
  Country: None (occurrence: None)
  Receive Date: 20110303
  Receipt Date: 20110223
  Transmission Date: 20110831
  Serious: Yes (Other)
  Sender: FDA-Public Use
  Company Number: US-AMGEN-USASP2011010495

PATIENT
  Age: 73 Year
  Sex: Male

DRUGS (2)
  1. ENBREL [Suspect]
     Indication: PSORIATIC ARTHROPATHY
     Dates: start: 20040628
  2. ENBREL [Suspect]
     Indication: PSORIASIS

REACTIONS (3)
  - SKIN CANCER [None]
  - PAIN IN EXTREMITY [None]
  - OPEN WOUND [None]
